FAERS Safety Report 6212620-2 (Version None)
Quarter: 2009Q2

REPORT INFORMATION
  Report Type: 
  Country: None (occurrence: None)
  Receive Date: 20090603
  Receipt Date: 20090527
  Transmission Date: 20091009
  Serious: Yes (Hospitalization)
  Sender: FDA-Public Use
  Company Number: JP-AMGEN-US349439

PATIENT
  Sex: Female

DRUGS (2)
  1. ENBREL [Suspect]
     Indication: RHEUMATOID ARTHRITIS
     Route: 058
     Dates: end: 20090516
  2. RHEUMATREX [Suspect]
     Dosage: UNKNOWN
     Route: 048
     Dates: end: 20090516

REACTIONS (4)
  - ANAEMIA [None]
  - MALAISE [None]
  - PULMONARY OEDEMA [None]
  - PYREXIA [None]
